FAERS Safety Report 22630167 (Version 1)
Quarter: 2023Q2

REPORT INFORMATION
  Report Type: Spontaneous
  Country: CH (occurrence: CH)
  Receive Date: 20230622
  Receipt Date: 20230622
  Transmission Date: 20230721
  Serious: Yes (Life-Threatening)
  Sender: FDA-Public Use
  Company Number: None

PATIENT
  Age: 67 Year
  Sex: Female
  Weight: 60 kg

DRUGS (27)
  1. TECENTRIQ [Suspect]
     Active Substance: ATEZOLIZUMAB
     Indication: Pleural mesothelioma
     Dosage: EXACT DOSE, SCHEDULE AND ROUTE OF ADMINISTRATION NOT STATED. THERAPY PAUSED TOGETHER WITH GEMCITA...
     Route: 065
     Dates: start: 202204, end: 20221006
  2. TECENTRIQ [Suspect]
     Active Substance: ATEZOLIZUMAB
     Indication: Pleural mesothelioma
     Route: 065
     Dates: start: 20221101
  3. GEMCITABINE [Suspect]
     Active Substance: GEMCITABINE
     Indication: Pleural mesothelioma
     Dosage: EXACT DOSE, ROUTE OF ADMINISTRATION AND SCHEDULE UNKNOWN / NOT STATED. GEMCITABIN (AND TECENTRIQ)...
     Route: 065
     Dates: start: 202204, end: 20221006
  4. CALCIUM\CHOLECALCIFEROL [Concomitant]
     Active Substance: CALCIUM\CHOLECALCIFEROL
     Dosage: ONCE DAILY, DOSE 1000 MG/ 800 I.E. EXACT START- AND ENDDATE OF THERAPY UNKNOWN
     Route: 048
  5. AMLODIPINE [Concomitant]
     Active Substance: AMLODIPINE BESYLATE
     Dosage: EXACT START- AND ENDDATE OF THERAPY UNKNOWN
     Route: 048
  6. TEMESTA [Concomitant]
     Dosage: EXPIDET: EXACT START- AND ENDDATE OF THERAPY UNKNOWN
     Route: 060
  7. MORPHINE [Concomitant]
     Active Substance: MORPHINE
     Indication: Pain
     Dosage: MORPHIN TROPFEN: 10MG EVERY 4 HOURS OCCASIONALLY
     Route: 048
  8. DAFALGAN [Concomitant]
     Active Substance: ACETAMINOPHEN
     Dosage: EXACT START- AND ENDDATE OF THERAPY UNKNOWN
     Route: 048
  9. PREDNISOLONE [Concomitant]
     Active Substance: PREDNISOLONE
     Indication: Dyspnoea
     Route: 048
     Dates: start: 20220826, end: 20220829
  10. PREDNISOLONE [Concomitant]
     Active Substance: PREDNISOLONE
     Indication: Dyspnoea
     Route: 048
     Dates: start: 20220829, end: 20220905
  11. PREDNISOLONE [Concomitant]
     Active Substance: PREDNISOLONE
     Indication: Dyspnoea
     Route: 048
     Dates: start: 20220905, end: 20220912
  12. PREDNISOLONE [Concomitant]
     Active Substance: PREDNISOLONE
     Indication: Dyspnoea
     Dosage: ENDDATE WAS NOT EXPLICITLY STATED
     Route: 048
     Dates: start: 20220912
  13. PREDNISOLONE [Concomitant]
     Active Substance: PREDNISOLONE
     Indication: Dyspnoea
     Route: 048
     Dates: start: 20221006, end: 20221007
  14. PREDNISOLONE [Concomitant]
     Active Substance: PREDNISOLONE
     Indication: Dyspnoea
     Dosage: EXACT ENDDATE NOT EXPLICITLY STATED
     Route: 048
     Dates: start: 20221007
  15. PREDNISOLONE [Concomitant]
     Active Substance: PREDNISOLONE
     Indication: Dyspnoea
     Dosage: EXACT ENDDATE FOR THIS PERIOD WAS NOT STATED
     Route: 048
     Dates: start: 20221124
  16. PREDNISOLONE [Concomitant]
     Active Substance: PREDNISOLONE
     Indication: Dyspnoea
     Route: 048
     Dates: start: 20230110, end: 20230127
  17. AZITHROMYCIN [Concomitant]
     Active Substance: AZITHROMYCIN
     Indication: Respiratory tract infection
     Dosage: INTAKE SCHEDULED FOR 4 DAYS
     Route: 048
     Dates: start: 20221119
  18. FOLVITE [Concomitant]
     Active Substance: FOLIC ACID
     Dosage: INTAKE EVERY SECOND DAY, EXACT ENDDATE UNKNOWN, ROUTE OF ADMINISTRATION NOT STATED
     Dates: start: 20221128
  19. PANTOPRAZOLE [Concomitant]
     Active Substance: PANTOPRAZOLE
     Dosage: DOSE, SCHEDULE, ROUTE OF ADMINISTRATION UNKNOWN. ENDDATE ALSO UNKNOWN.
     Dates: start: 20220905
  20. TORSEMIDE [Concomitant]
     Active Substance: TORSEMIDE
     Dosage: EXACT DOSE, START- AND ENDDATE UNKNOWN.
  21. TORSEMIDE [Concomitant]
     Active Substance: TORSEMIDE
     Dosage: EXACT ENDDATE, SCHEDULE, FORMULATION AND ROUTE OF ADMINISTRATION UNKNOWN/NOT STATED
     Dates: start: 20230601
  22. CANDESARTAN [Concomitant]
     Active Substance: CANDESARTAN
     Dosage: ENDDATE OF THERAPY UNKNOWN, AS WELL AS FORMULATION, DOSE, ROUTE OF ADMINISTRATION
     Dates: start: 20220926
  23. CANDESARTAN [Concomitant]
     Active Substance: CANDESARTAN
     Dosage: EXACT SCHEDULE, ROUTE OF ADMINISTRATION, AND ENDDATE NOT STATED
     Dates: start: 20230201
  24. DEXAMETHASONE [Concomitant]
     Active Substance: DEXAMETHASONE
  25. CARBOPLATIN [Concomitant]
     Active Substance: CARBOPLATIN
  26. PEMETREXED [Concomitant]
     Active Substance: PEMETREXED
  27. PEMBROLIZUMAB [Concomitant]
     Active Substance: PEMBROLIZUMAB

REACTIONS (1)
  - Thrombotic microangiopathy [Recovering/Resolving]

NARRATIVE: CASE EVENT DATE: 20220822
